FAERS Safety Report 23322001 (Version 1)
Quarter: 2023Q4

REPORT INFORMATION
  Report Type: Spontaneous
  Country: CA (occurrence: CA)
  Receive Date: 20231220
  Receipt Date: 20231220
  Transmission Date: 20240109
  Serious: Yes (Hospitalization)
  Sender: FDA-Public Use
  Company Number: CA-HIKMA PHARMACEUTICALS-CA-H14001-23-68152

PATIENT
  Age: 3 Decade
  Sex: Female

DRUGS (3)
  1. BUPRENORPHINE [Suspect]
     Active Substance: BUPRENORPHINE
     Indication: Drug use disorder
     Dosage: UNK
     Route: 058
  2. BUPRENORPHINE\NALOXONE [Suspect]
     Active Substance: BUPRENORPHINE\NALOXONE
     Indication: Drug use disorder
     Dosage: UNKNOWN
     Route: 060
  3. FENTANYL [Suspect]
     Active Substance: FENTANYL\FENTANYL CITRATE
     Indication: Drug abuse
     Dosage: UNK
     Route: 042

REACTIONS (6)
  - Anxiety [Unknown]
  - Emotional disorder [Unknown]
  - Drug use disorder [Unknown]
  - Drug withdrawal syndrome [Unknown]
  - Intentional overdose [Unknown]
  - Drug ineffective [Unknown]
